FAERS Safety Report 8141954-X (Version None)
Quarter: 2012Q1

REPORT INFORMATION
  Report Type: 
  Country: None (occurrence: None)
  Receive Date: 20120216
  Receipt Date: 20120210
  Transmission Date: 20120608
  Serious: Yes (Hospitalization)
  Sender: FDA-Public Use
  Company Number: FR-GLAXOSMITHKLINE-B0780987A

PATIENT
  Age: 57 Year
  Sex: Male
  Weight: 187 kg

DRUGS (1)
  1. ARIXTRA [Suspect]
     Indication: ATRIAL FIBRILLATION

REACTIONS (3)
  - SUPERINFECTION [None]
  - OFF LABEL USE [None]
  - HAEMORRHAGE [None]
